FAERS Safety Report 7452018-2 (Version None)
Quarter: 2011Q2

REPORT INFORMATION
  Report Type: 
  Country: None (occurrence: None)
  Receive Date: 20110425
  Receipt Date: 20110414
  Transmission Date: 20111010
  Serious: Yes (Other)
  Sender: FDA-Public Use
  Company Number: 2011MA004337

PATIENT
  Age: 64 Year
  Sex: Male

DRUGS (6)
  1. AMITRIPTYLINE HCL [Concomitant]
  2. CITALOPRAM HYDROBROMIDE [Concomitant]
  3. CITALOPRAM HYDROBROMIDE [Suspect]
     Indication: PRODUCT USED FOR UNKNOWN INDICATION
  4. LEVOTHYROXINE SODIUM [Concomitant]
  5. VENLAFAXINE [Concomitant]
  6. DIAZEPAM [Concomitant]

REACTIONS (1)
  - MYOPATHY [None]
